FAERS Safety Report 13276729 (Version 1)
Quarter: 2017Q1

REPORT INFORMATION
  Report Type: Spontaneous
  Country: US (occurrence: US)
  Receive Date: 20170228
  Receipt Date: 20170228
  Transmission Date: 20170428
  Serious: Yes (Hospitalization)
  Sender: FDA-Public Use
  Company Number: None

PATIENT
  Age: 40 Year
  Sex: Female

DRUGS (4)
  1. METHYLPREDNISONE [Suspect]
     Active Substance: METHYLPREDNISOLONE
  2. PANTOPRAZOLE [Suspect]
     Active Substance: PANTOPRAZOLE SODIUM
  3. AMOXICILLIN. [Suspect]
     Active Substance: AMOXICILLIN
  4. DOXYCYCLINE. [Suspect]
     Active Substance: DOXYCYCLINE

REACTIONS (4)
  - Vomiting [None]
  - Clostridium difficile infection [None]
  - Nausea [None]
  - Migraine [None]

NARRATIVE: CASE EVENT DATE: 20150815
